FAERS Safety Report 6257567-0 (Version None)
Quarter: 2009Q3

REPORT INFORMATION
  Report Type: 
  Country: None (occurrence: None)
  Receive Date: 20090706
  Receipt Date: 20090630
  Transmission Date: 20100115
  Serious: Yes (Death, Hospitalization, Other)
  Sender: FDA-Public Use
  Company Number: PHHY2009BR26573

PATIENT
  Sex: Male

DRUGS (2)
  1. FORASEQ [Suspect]
     Indication: EMPHYSEMA
     Dosage: 12/400 MCG, 2 TIMES/DAY
  2. BEROTEC [Concomitant]

REACTIONS (5)
  - CARDIAC ARREST [None]
  - DYSPNOEA [None]
  - FEELING ABNORMAL [None]
  - PNEUMONIA [None]
  - RESPIRATORY ARREST [None]
